FAERS Safety Report 10267074 (Version 1)
Quarter: 2014Q2

REPORT INFORMATION
  Report Type: Report from Study
  Country: JP (occurrence: JP)
  Receive Date: 20140630
  Receipt Date: 20140630
  Transmission Date: 20141212
  Serious: Yes (Life-Threatening, Hospitalization, Other)
  Sender: FDA-Public Use
  Company Number: JP-SHIRE-JP201403488

PATIENT
  Age: 77 Year
  Sex: Female

DRUGS (16)
  1. 405 (LANTHANUM CARBONATE) [Suspect]
     Indication: HYPERPHOSPHATAEMIA
     Dosage: 750 MG, UNKNOWN
     Route: 048
     Dates: start: 20090618, end: 20101019
  2. 405 (LANTHANUM CARBONATE) [Suspect]
     Dosage: 750 MG, UNKNOWN
     Route: 048
     Dates: start: 20110201
  3. BAYASPIRIN [Suspect]
     Indication: ANGINA PECTORIS
     Dosage: 100 MG, 1X/DAY:QD (START DATE }4 WEEKS BEFORE INITIATION OF FOSRENOL)
     Route: 048
  4. CALTAN [Concomitant]
     Indication: HYPERPHOSPHATAEMIA
     Dosage: 1200 MG, UNKNOWN
     Route: 048
  5. CALTAN [Concomitant]
     Dosage: 1500 MG, UNKNOWN
     Route: 048
     Dates: start: 20090806
  6. RENAGEL                            /01459901/ [Concomitant]
     Indication: HYPERPHOSPHATAEMIA
     Dosage: 750 MG, 1X/DAY:QD
     Route: 048
     Dates: start: 20090109, end: 20090608
  7. RENAGEL                            /01459901/ [Concomitant]
     Dosage: 2250 MG, UNKNOWN
     Route: 048
     Dates: start: 20090609, end: 20110201
  8. ONEALFA [Concomitant]
     Indication: PRODUCT USED FOR UNKNOWN INDICATION
     Dosage: 0.5 ?G, UNKNOWN
     Route: 048
     Dates: start: 20090421
  9. SELBEX [Concomitant]
     Indication: GASTRITIS
     Dosage: 1.5 G, UNKNOWN
     Route: 048
  10. ARTIST [Concomitant]
     Indication: HYPERTENSION
     Dosage: 2.5 MG, UNKNOWN
     Route: 048
     Dates: start: 20090609
  11. NITOROL R [Concomitant]
     Indication: ANGINA PECTORIS
     Dosage: 20 MG, UNKNOWN
     Route: 048
  12. DIOVAN [Concomitant]
     Indication: HYPERTENSION
     Dosage: 40 MG, UNKNOWN
     Route: 048
     Dates: start: 20090421
  13. NORVASC [Concomitant]
     Indication: HYPERTENSION
     Dosage: 2.5 MG, UNKNOWN
     Route: 048
     Dates: start: 20090512
  14. HALCION [Concomitant]
     Indication: INSOMNIA
     Dosage: 0.25 MG, UNKNOWN
     Route: 048
  15. EPOGIN [Concomitant]
     Indication: ANAEMIA
     Dosage: 750 IU, UNKNOWN
     Route: 042
     Dates: start: 20090616
  16. NOVOLIN 30R                        /00030501/ [Concomitant]
     Indication: DIABETES MELLITUS
     Dosage: 10 IU, UNKNOWN
     Route: 058

REACTIONS (3)
  - Gastrointestinal haemorrhage [Recovered/Resolved]
  - Diverticulum intestinal [Recovered/Resolved]
  - Acute myocardial infarction [Recovering/Resolving]
